FAERS Safety Report 6118130-5 (Version None)
Quarter: 2009Q1

REPORT INFORMATION
  Report Type: 
  Country: None (occurrence: None)
  Receive Date: 20090314
  Receipt Date: 20090204
  Transmission Date: 20090719
  Serious: No
  Sender: FDA-Public Use
  Company Number: US-ABBOTT-09P-163-0501967-00

PATIENT
  Sex: Male
  Weight: 81.72 kg

DRUGS (2)
  1. HUMIRA [Suspect]
     Indication: CROHN'S DISEASE
     Dosage: 160 MG DAY 1; LOADING DOSE
     Route: 058
     Dates: start: 20090106, end: 20090106
  2. HUMIRA [Suspect]
     Route: 058

REACTIONS (1)
  - NASOPHARYNGITIS [None]
